FAERS Safety Report 8960515 (Version 1)
Quarter: 2012Q4

REPORT INFORMATION
  Report Type: Spontaneous
  Country: DK (occurrence: None)
  Receive Date: 20121203
  Receipt Date: 20121203
  Transmission Date: 20130627
  Serious: Yes (Life-Threatening)
  Sender: FDA-Public Use
  Company Number: 2012MA013603

PATIENT
  Age: 60 Year
  Sex: Male

DRUGS (1)
  1. TRAMADOL HYDROCHLORIDE [Suspect]
     Indication: LEG PAIN
     Dosage: 100 MG;  ; IV NOS
     Dates: start: 20121111, end: 20121111

REACTIONS (5)
  - Cardiogenic shock [None]
  - Bronchospasm [None]
  - Ventricular extrasystoles [None]
  - Hypoxia [None]
  - Blood gases abnormal [None]
